APPROVED DRUG PRODUCT: CARDIOTEC
Active Ingredient: TECHNETIUM TC-99M TEBOROXIME KIT
Strength: N/A
Dosage Form/Route: INJECTABLE;INJECTION
Application: N019928 | Product #001
Applicant: BRACCO DIAGNOSTICS INC
Approved: Dec 19, 1990 | RLD: No | RS: No | Type: DISCN